FAERS Safety Report 6145365-8 (Version None)
Quarter: 2009Q2

REPORT INFORMATION
  Report Type: 
  Country: None (occurrence: None)
  Receive Date: 20090402
  Receipt Date: 20090323
  Transmission Date: 20091009
  Serious: Yes (Hospitalization, Other)
  Sender: FDA-Public Use
  Company Number: 2009002060

PATIENT
  Age: 8 Year
  Sex: Female
  Weight: 45.9 kg

DRUGS (5)
  1. TRISENOX [Suspect]
     Indication: ANAPLASTIC ASTROCYTOMA
     Dosage: 6.5 MG, EVERY MONDAY, TUESDAY, THURSDAY AND FRI), INTRAVENOUS
     Route: 042
     Dates: start: 20090217
  2. FLUCONAZOLE [Concomitant]
  3. KEPPRA [Concomitant]
  4. PEPCID [Concomitant]
  5. DECADRON [Concomitant]

REACTIONS (14)
  - ANOREXIA [None]
  - CONFUSIONAL STATE [None]
  - CONVULSION [None]
  - DEHYDRATION [None]
  - DISORIENTATION [None]
  - ENCEPHALITIS [None]
  - ENCEPHALOPATHY [None]
  - GAIT DISTURBANCE [None]
  - HALLUCINATION, AUDITORY [None]
  - MALAISE [None]
  - NAUSEA [None]
  - RADIATION INJURY [None]
  - STARING [None]
  - VOMITING [None]
